FAERS Safety Report 13295779 (Version 3)
Quarter: 2017Q3

REPORT INFORMATION
  Report Type: Report from Study
  Country: US (occurrence: US)
  Receive Date: 20170303
  Receipt Date: 20170925
  Transmission Date: 20171127
  Serious: Yes (Hospitalization)
  Sender: FDA-Public Use
  Company Number: US-ACTELION-A-NJ2017-150590

PATIENT
  Age: 64 Year
  Sex: Female
  Weight: 157.37 kg

DRUGS (2)
  1. OPSUMIT [Suspect]
     Active Substance: MACITENTAN
     Indication: PULMONARY ARTERIAL HYPERTENSION
     Dosage: 10 MG, QD
     Route: 048
  2. ADCIRCA [Concomitant]
     Active Substance: TADALAFIL

REACTIONS (4)
  - Nephrolithiasis [Not Recovered/Not Resolved]
  - Renal stone removal [Not Recovered/Not Resolved]
  - Infection [Unknown]
  - Kidney infection [Not Recovered/Not Resolved]

NARRATIVE: CASE EVENT DATE: 20170214
